FAERS Safety Report 9241856 (Version 1)
Quarter: 2013Q2

REPORT INFORMATION
  Report Type: Spontaneous
  Country: GB (occurrence: GB)
  Receive Date: 20130419
  Receipt Date: 20130419
  Transmission Date: 20140414
  Serious: Yes (Death, Hospitalization)
  Sender: FDA-Public Use
  Company Number: GB-UCBSA-079365

PATIENT
  Age: 40 Year
  Sex: Female

DRUGS (2)
  1. CIMZIA [Suspect]
     Indication: RHEUMATOID ARTHRITIS
     Dosage: NUMBER OF DOSES RECEIVED: 39
     Route: 058
     Dates: start: 20110307, end: 20120803
  2. PREDNISOLONE [Concomitant]
     Dosage: UNKNOWN DOSE

REACTIONS (2)
  - Pleural effusion [Fatal]
  - Pleural fibrosis [Fatal]
